FAERS Safety Report 12898965 (Version 4)
Quarter: 2016Q4

REPORT INFORMATION
  Report Type: Spontaneous
  Country: US (occurrence: US)
  Receive Date: 20161101
  Receipt Date: 20161118
  Transmission Date: 20170207
  Serious: No
  Sender: FDA-Public Use
  Company Number: US-BAYER-2016-207843

PATIENT
  Age: 79 Year
  Sex: Female
  Weight: 54.42 kg

DRUGS (2)
  1. BENAZEPRIL [Concomitant]
     Active Substance: BENAZEPRIL HYDROCHLORIDE
     Dosage: UNK
  2. ALEVE [Suspect]
     Active Substance: NAPROXEN SODIUM
     Indication: PAIN
     Dosage: 1-2 DF, PRN
     Route: 048
     Dates: end: 20161006

REACTIONS (8)
  - Pre-existing condition improved [Unknown]
  - Foreign body [Recovered/Resolved]
  - Throat irritation [Unknown]
  - Burning sensation mucosal [Unknown]
  - Throat irritation [Recovered/Resolved]
  - Oral discomfort [Unknown]
  - Oesophageal pain [Recovered/Resolved]
  - Oropharyngeal pain [None]

NARRATIVE: CASE EVENT DATE: 201610
